FAERS Safety Report 10680158 (Version 2)
Quarter: 2015Q1

REPORT INFORMATION
  Report Type: Spontaneous
  Country: BG (occurrence: BG)
  Receive Date: 20141229
  Receipt Date: 20150226
  Transmission Date: 20150720
  Serious: Yes (Hospitalization)
  Sender: FDA-Public Use
  Company Number: PHHY2014BG167372

PATIENT
  Age: 63 Year
  Sex: Male

DRUGS (1)
  1. METHOTREXATE (METHOTREXATE SODIUM) [Suspect]
     Active Substance: METHOTREXATE SODIUM
     Indication: RHEUMATOID ARTHRITIS
     Dosage: 10 MG, QD FOR 3 DAYS DIVIDED IN 4 APPLICATIONS DAILY
     Route: 048

REACTIONS (13)
  - Oesophagitis [Recovered/Resolved]
  - Diarrhoea [Recovered/Resolved]
  - Rash [Recovered/Resolved]
  - Bicytopenia [Recovered/Resolved]
  - Pharyngitis [Recovered/Resolved]
  - Incorrect drug administration rate [Recovered/Resolved]
  - Skin disorder [Recovered/Resolved]
  - Stomatitis [Recovered/Resolved]
  - Circumstance or information capable of leading to medication error [Recovered/Resolved]
  - Haematuria [Recovered/Resolved]
  - Cystitis [Recovered/Resolved]
  - Gastritis [Recovered/Resolved]
  - Overdose [Recovered/Resolved]
